FAERS Safety Report 10156711 (Version 2)
Quarter: 2014Q2

REPORT INFORMATION
  Report Type: Spontaneous
  Country: GB (occurrence: GB)
  Receive Date: 20140507
  Receipt Date: 20140613
  Transmission Date: 20141212
  Serious: Yes (Other)
  Sender: FDA-Public Use
  Company Number: GB-AMGEN INC.-GBRSP2014032947

PATIENT
  Age: 56 Year
  Sex: Female
  Weight: 85 kg

DRUGS (13)
  1. ENBREL [Suspect]
     Indication: RHEUMATOID ARTHRITIS
     Dosage: 50 MG, WEEKLY
     Route: 058
     Dates: start: 2005
  2. PREDNISOLONE [Concomitant]
     Dosage: 5 MG, 1X/DAY
  3. RISEDRONATE SODIUM [Concomitant]
     Dosage: 35 MG, WEEKLY
  4. ROSUVASTATIN [Concomitant]
     Dosage: 5 MG, 1X/DAY
  5. TRAMADOL [Concomitant]
     Dosage: 50 MG, 2 TABLETS 4X/DAY
  6. DEKRISTOL [Concomitant]
     Dosage: 2 DF, MONTHLY
  7. E45 [Concomitant]
     Dosage: UNK G, 2X/DAY
  8. FOLIC ACID [Concomitant]
     Dosage: 5 MG, WEEKLY
  9. FUROSEMIDE [Concomitant]
     Dosage: 40 MG, 1X/DAY
  10. LANSOPRAZOLE [Concomitant]
     Dosage: 30 MG, 1X/DAY
  11. METFORMIN [Concomitant]
     Dosage: 500 MG, 2X/DAY
  12. METHOTREXATE [Concomitant]
     Dosage: 2.5 MG, WEEKLY
  13. NEBIVOLOL [Concomitant]
     Dosage: 5 MG, 1X/DAY

REACTIONS (1)
  - Arthropathy [Recovered/Resolved]
